FAERS Safety Report 5861512-7 (Version None)
Quarter: 2008Q3

REPORT INFORMATION
  Report Type: 
  Country: None (occurrence: None)
  Receive Date: 20080827
  Receipt Date: 20080527
  Transmission Date: 20090109
  Serious: No
  Sender: FDA-Public Use
  Company Number: US-ABBOTT-08P-163-0453392-00

PATIENT
  Sex: Female
  Weight: 72.64 kg

DRUGS (9)
  1. NIASPAN [Suspect]
     Indication: HIGH DENSITY LIPOPROTEIN DECREASED
     Route: 048
     Dates: start: 20071201, end: 20080527
  2. NIASPAN [Suspect]
     Dates: start: 20080527
  3. DAILY VITAMIN WITH MINERALS [Concomitant]
     Indication: NUTRITIONAL SUPPORT
     Route: 048
  4. PROPRANOLOL [Concomitant]
     Indication: CARDIAC DISORDER
     Route: 048
  5. WARFARIN SODIUM [Concomitant]
     Indication: CARDIAC DISORDER
     Dosage: 5MG M,W,F AND 6MG T,R
     Route: 048
  6. WARFARIN SODIUM [Concomitant]
     Indication: ANTICOAGULANT THERAPY
  7. ACETYLSALICYLIC ACID SRT [Concomitant]
     Indication: CARDIAC DISORDER
     Route: 048
  8. DIGITALIS PURPUREA [Concomitant]
     Indication: CARDIAC DISORDER
     Route: 048
  9. ANALAPRIL/VASOTEC [Concomitant]
     Indication: CARDIAC DISORDER
     Route: 048

REACTIONS (4)
  - BLOOD GLUCOSE INCREASED [None]
  - BURNING SENSATION [None]
  - FLUSHING [None]
  - RASH [None]
